FAERS Safety Report 8376166-8 (Version None)
Quarter: 2012Q2

REPORT INFORMATION
  Report Type: 
  Country: None (occurrence: None)
  Receive Date: 20120522
  Receipt Date: 20120521
  Transmission Date: 20120825
  Serious: Yes (Other)
  Sender: FDA-Public Use
  Company Number: PHHY2012NL043049

PATIENT
  Sex: Male

DRUGS (2)
  1. ZOMETA [Suspect]
     Dosage: 4MG/100ML ,ONCE PER 28 DAYS
     Dates: start: 20120502
  2. ZOMETA [Suspect]
     Indication: PROSTATE CANCER METASTATIC
     Dosage: 4MG/100ML ,ONCE PER 28 DAYS
     Dates: start: 20120403

REACTIONS (1)
  - GENERAL PHYSICAL HEALTH DETERIORATION [None]
